FAERS Safety Report 9020426 (Version 1)
Quarter: 2013Q1

REPORT INFORMATION
  Report Type: Spontaneous
  Country: US (occurrence: US)
  Receive Date: 20130119
  Receipt Date: 20130119
  Transmission Date: 20140127
  Serious: No
  Sender: FDA-Public Use
  Company Number: US-ALLERGAN-1208492US

PATIENT
  Age: 73 Year
  Sex: Female

DRUGS (7)
  1. BOTOX? [Suspect]
     Indication: TORTICOLLIS
     Dosage: 200 UNITS, SINGLE
     Route: 030
     Dates: start: 20120309, end: 20120309
  2. ATENOLOL [Concomitant]
     Indication: HYPERTENSION
     Dosage: 100 MG, UNK
     Dates: start: 1996
  3. LISINOPRIL [Concomitant]
     Indication: HYPERTENSION
     Dosage: 20 MG, BID
     Dates: start: 1996
  4. HCTZ [Concomitant]
     Indication: HYPERTENSION
     Dosage: 15 MG, UNK
     Dates: start: 1996
  5. NORVASC                            /00972401/ [Concomitant]
     Indication: HYPERTENSION
     Dosage: 10 MG, UNK
     Dates: start: 1996
  6. LIPITOR [Concomitant]
     Indication: PRODUCT USED FOR UNKNOWN INDICATION
     Dosage: 2.5 MG, UNK
     Dates: start: 1996
  7. CLONAZEPAM [Concomitant]
     Indication: INSOMNIA
     Dosage: 0.5 MG, UNK
     Dates: start: 1996

REACTIONS (1)
  - Dysarthria [Unknown]
